FAERS Safety Report 13202199 (Version 2)
Quarter: 2017Q1

REPORT INFORMATION
  Report Type: Other
  Country: CH (occurrence: CH)
  Receive Date: 20170209
  Receipt Date: 20170223
  Transmission Date: 20170428
  Serious: Yes (Hospitalization, Other)
  Sender: FDA-Public Use
  Company Number: CH-ASTELLAS-2017US004238

PATIENT
  Age: 60 Year
  Sex: Male

DRUGS (19)
  1. CRESEMBA [Interacting]
     Active Substance: ISAVUCONAZONIUM SULFATE
     Route: 048
     Dates: start: 20161215
  2. PREDNISON [Concomitant]
     Active Substance: PREDNISONE
     Indication: PRODUCT USED FOR UNKNOWN INDICATION
     Dosage: UNK UNK, UNKNOWN FREQ.
     Route: 065
     Dates: start: 20161005, end: 20161020
  3. BUDENOFALK [Concomitant]
     Active Substance: BUDESONIDE
     Indication: CHRONIC GRAFT VERSUS HOST DISEASE IN INTESTINE
     Route: 048
     Dates: start: 20160901
  4. CRESEMBA [Interacting]
     Active Substance: ISAVUCONAZONIUM SULFATE
     Indication: CEREBRAL DISORDER
     Route: 042
     Dates: start: 20161109, end: 20161130
  5. TIENAM [Suspect]
     Active Substance: CILASTATIN SODIUM\IMIPENEM
     Indication: PRODUCT USED FOR UNKNOWN INDICATION
     Route: 065
     Dates: start: 20161205, end: 20161214
  6. MAGNESIOCARD [Concomitant]
     Active Substance: MAGNESIUM ASPARTATE HYDROCHLORIDE
     Indication: PRODUCT USED FOR UNKNOWN INDICATION
     Dosage: UNK UNK, UNKNOWN FREQ.
     Route: 065
  7. PROGRAF [Interacting]
     Active Substance: TACROLIMUS\TACROLIMUS ANHYDROUS
     Indication: GRAFT VERSUS HOST DISEASE
     Dosage: 1MG-1-0-0.5MG, UNKNOWN FREQ.
     Route: 065
     Dates: start: 20160917, end: 20161219
  8. KALIUM HAUSMANN EFFERVETTES [Concomitant]
     Indication: PRODUCT USED FOR UNKNOWN INDICATION
     Dosage: UNK UNK, UNKNOWN FREQ.
     Route: 065
  9. PANTOZOL [Concomitant]
     Active Substance: PANTOPRAZOLE SODIUM
     Indication: PRODUCT USED FOR UNKNOWN INDICATION
     Dosage: 40 MG, TWICE DAILY (1-0-1)
     Route: 048
     Dates: start: 20160901
  10. AMBISOME [Suspect]
     Active Substance: AMPHOTERICIN B
     Indication: ANTIFUNGAL TREATMENT
     Dosage: 5 MG/KG, ONCE DAILY (350MG/DAY)
     Route: 042
     Dates: start: 20161013, end: 20161024
  11. NOPIL [Interacting]
     Active Substance: SULFAMETHOXAZOLE\TRIMETHOPRIM
     Indication: PRODUCT USED FOR UNKNOWN INDICATION
     Dosage: 1 DF (800/160MG), THRICE WEEKLY
     Route: 048
     Dates: start: 20160901
  12. PREDNISON [Concomitant]
     Active Substance: PREDNISONE
     Route: 065
     Dates: start: 20161130
  13. AMBISOME [Interacting]
     Active Substance: AMPHOTERICIN B
     Dosage: 7 MG/KG, ONCE DAILY
     Route: 065
     Dates: start: 20161024, end: 20161121
  14. AMBISOME [Interacting]
     Active Substance: AMPHOTERICIN B
     Dosage: 5 MG/KG, ONCE DAILY
     Route: 065
     Dates: start: 20161122, end: 20170102
  15. AMBISOME [Interacting]
     Active Substance: AMPHOTERICIN B
     Dosage: 5 MG/KG, EVERY OTHER DAY
     Route: 042
     Dates: start: 20170102
  16. CRESEMBA [Interacting]
     Active Substance: ISAVUCONAZONIUM SULFATE
     Indication: PNEUMONIA FUNGAL
     Route: 042
     Dates: start: 20161201, end: 20161214
  17. VALTREX [Suspect]
     Active Substance: VALACYCLOVIR HYDROCHLORIDE
     Indication: PRODUCT USED FOR UNKNOWN INDICATION
     Dosage: 500 MG, TWICE DAILY (1-0-1)
     Route: 048
     Dates: start: 20160822
  18. VITAMIN D3 STREULI [Concomitant]
     Indication: PRODUCT USED FOR UNKNOWN INDICATION
     Dosage: UNK UNK, AS NEEDED
     Route: 065
  19. SUPRADYN                           /01742801/ [Concomitant]
     Indication: PRODUCT USED FOR UNKNOWN INDICATION
     Dosage: UNK UNK, UNKNOWN FREQ.
     Route: 065

REACTIONS (4)
  - Acute kidney injury [Recovering/Resolving]
  - Drug interaction [Recovering/Resolving]
  - Immunosuppressant drug level increased [Unknown]
  - Drug interaction [Recovering/Resolving]

NARRATIVE: CASE EVENT DATE: 20160917
